FAERS Safety Report 23865148 (Version 1)
Quarter: 2024Q2

REPORT INFORMATION
  Report Type: Report from Study
  Country: US (occurrence: US)
  Receive Date: 20240517
  Receipt Date: 20240517
  Transmission Date: 20240716
  Serious: Yes (Other)
  Sender: FDA-Public Use
  Company Number: US-ABBVIE-5760572

PATIENT
  Age: 51 Year
  Sex: Female

DRUGS (1)
  1. HUMIRA [Suspect]
     Active Substance: ADALIMUMAB
     Indication: Psoriatic arthropathy
     Route: 058
     Dates: start: 20191001

REACTIONS (4)
  - Joint injury [Unknown]
  - Psoriatic arthropathy [Recovered/Resolved]
  - Fall [Recovering/Resolving]
  - Concussion [Unknown]

NARRATIVE: CASE EVENT DATE: 20240115
